FAERS Safety Report 9624875 (Version 3)
Quarter: 2013Q4

REPORT INFORMATION
  Report Type: Spontaneous
  Country: JP (occurrence: JP)
  Receive Date: 20131016
  Receipt Date: 20131018
  Transmission Date: 20140711
  Serious: Yes (Other)
  Sender: FDA-Public Use
  Company Number: JP-PFIZER INC-2013221827

PATIENT
  Age: 78 Year
  Sex: Male

DRUGS (9)
  1. DETRUSITOL [Suspect]
     Indication: POLLAKIURIA
     Dosage: 4 MG, 1X/DAY
     Route: 048
     Dates: start: 20130529, end: 20130603
  2. AVOLVE [Concomitant]
     Indication: DYSURIA
     Dosage: 4 MG, 1X/DAY
     Route: 048
     Dates: start: 20130403
  3. URIEF [Concomitant]
     Indication: DYSURIA
     Dosage: 4 MG, 2X/DAY
     Route: 048
     Dates: start: 20130121
  4. BLOPRESS [Concomitant]
     Dosage: 8 MG, 1X/DAY
     Route: 048
  5. GASRICK [Concomitant]
     Dosage: 20 MG, 1X/DAY
     Route: 048
  6. TANATRIL ^ALGOL^ [Concomitant]
     Dosage: 10 MG, 1X/DAY
     Route: 048
  7. ARYTHMET [Concomitant]
     Dosage: 100 MG, 1X/DAY
     Route: 048
  8. NARCARICIN [Concomitant]
     Dosage: 50 MG, 1X/DAY
     Route: 048
  9. BORBIT [Concomitant]
     Dosage: 80 MG, 2X/DAY
     Route: 048

REACTIONS (1)
  - Urinary retention [Recovered/Resolved]
